FAERS Safety Report 13851748 (Version 1)
Quarter: 2017Q3

REPORT INFORMATION
  Report Type: Report from Study
  Country: None (occurrence: IT)
  Receive Date: 20170810
  Receipt Date: 20170810
  Transmission Date: 20171127
  Serious: Yes (Hospitalization)
  Sender: FDA-Public Use
  Company Number: IT-ABBVIE-17K-083-2066599-00

PATIENT
  Age: 66 Year
  Sex: Male

DRUGS (1)
  1. DUODOPA [Suspect]
     Active Substance: CARBIDOPA\LEVODOPA
     Indication: PARKINSON^S DISEASE
     Dosage: MD 14+3??CR 2.5??ED 3.2
     Route: 050
     Dates: start: 20150117

REACTIONS (3)
  - General physical health deterioration [Unknown]
  - Respiratory failure [Unknown]
  - Renal failure [Unknown]

NARRATIVE: CASE EVENT DATE: 201705
